FAERS Safety Report 11878693 (Version 2)
Quarter: 2016Q1

REPORT INFORMATION
  Report Type: Spontaneous
  Country: FR (occurrence: FR)
  Receive Date: 20151230
  Receipt Date: 20160211
  Transmission Date: 20160526
  Serious: Yes (Death, Other)
  Sender: FDA-Public Use
  Company Number: FR-THE MEDICINES COMPANY-FR-MDCO-15-00521

PATIENT
  Age: 62 Year
  Sex: Female

DRUGS (7)
  1. SUFENTANIL [Concomitant]
     Active Substance: SUFENTANIL
     Indication: INDUCTION AND MAINTENANCE OF ANAESTHESIA
     Dosage: NOT REPORTED
  2. MEDIATOR [Concomitant]
     Active Substance: BENFLUOREX
     Indication: TYPE 2 DIABETES MELLITUS
     Dosage: NOT REPORTED
  3. CLEVIPREX [Suspect]
     Active Substance: CLEVIDIPINE
     Indication: BLOOD PRESSURE MANAGEMENT
     Dosage: 2MG/H TO 5MG/H
     Route: 041
     Dates: start: 20151216, end: 20151216
  4. CISATRACARIUM [Concomitant]
     Indication: INDUCTION AND MAINTENANCE OF ANAESTHESIA
     Dosage: NOT REPORTED
  5. SEVOFLURANE. [Concomitant]
     Active Substance: SEVOFLURANE
     Indication: MAINTENANCE OF ANAESTHESIA
     Dosage: NOT REPORTED
  6. ISOMERIDE [Concomitant]
     Active Substance: DEXFENFLURAMINE
     Indication: TYPE 2 DIABETES MELLITUS
     Dosage: NOT REPORTED
  7. PROPOFOL. [Concomitant]
     Active Substance: PROPOFOL
     Indication: INDUCTION OF ANAESTHESIA
     Dosage: NOT REPORTED

REACTIONS (4)
  - Pulmonary artery thrombosis [Unknown]
  - Electrocardiogram abnormal [Unknown]
  - Cardiogenic shock [Fatal]
  - Echocardiogram abnormal [Unknown]

NARRATIVE: CASE EVENT DATE: 20151216
